FAERS Safety Report 15944591 (Version 3)
Quarter: 2019Q1

REPORT INFORMATION
  Report Type: Report from Study
  Country: None (occurrence: CA)
  Receive Date: 20190211
  Receipt Date: 20190306
  Transmission Date: 20190417
  Serious: Yes (Life-Threatening, Hospitalization, Other)
  Sender: FDA-Public Use
  Company Number: CA-ABBVIE-19K-028-2659418-00

PATIENT
  Age: 15 Year
  Sex: Female
  Weight: 81.9 kg

DRUGS (2)
  1. PREDNISONE. [Concomitant]
     Active Substance: PREDNISONE
     Indication: PRODUCT USED FOR UNKNOWN INDICATION
     Route: 065
  2. HUMIRA [Suspect]
     Active Substance: ADALIMUMAB
     Indication: JUVENILE IDIOPATHIC ARTHRITIS
     Route: 058
     Dates: start: 20150923, end: 20181219

REACTIONS (11)
  - Respiratory distress [Unknown]
  - Autoimmune disorder [Unknown]
  - Pneumonia [Not Recovered/Not Resolved]
  - Pyrexia [Not Recovered/Not Resolved]
  - Renal failure [Recovered/Resolved]
  - IgA nephropathy [Recovering/Resolving]
  - Infection [Unknown]
  - Vasculitis [Unknown]
  - Cystitis [Not Recovered/Not Resolved]
  - Medical induction of coma [Recovered/Resolved]
  - Staphylococcal sepsis [Unknown]

NARRATIVE: CASE EVENT DATE: 201812
